FAERS Safety Report 6934832-2 (Version None)
Quarter: 2010Q3

REPORT INFORMATION
  Report Type: 
  Country: None (occurrence: None)
  Receive Date: 20100820
  Receipt Date: 20100806
  Transmission Date: 20110219
  Serious: Yes (Other)
  Sender: FDA-Public Use
  Company Number: PHHY2010CA41081

PATIENT
  Sex: Female

DRUGS (2)
  1. ZOLEDRONIC [Suspect]
     Indication: OSTEOPOROSIS
     Dosage: 5 MG
     Route: 042
     Dates: start: 20090608
  2. ZOLEDRONIC [Suspect]
     Dosage: 5 MG
     Dates: start: 20100702

REACTIONS (9)
  - ASTHENIA [None]
  - BLOOD SODIUM DECREASED [None]
  - BONE PAIN [None]
  - CATARACT OPERATION [None]
  - DISCOMFORT [None]
  - FATIGUE [None]
  - INFLUENZA LIKE ILLNESS [None]
  - NAUSEA [None]
  - SYNCOPE [None]
